FAERS Safety Report 10042944 (Version 2)
Quarter: 2014Q2

REPORT INFORMATION
  Report Type: Spontaneous
  Country: IT (occurrence: IT)
  Receive Date: 20140328
  Receipt Date: 20140526
  Transmission Date: 20141212
  Serious: Yes (Other)
  Sender: FDA-Public Use
  Company Number: IT-ROCHE-1370837

PATIENT
  Age: 44 Year
  Sex: Female
  Weight: 49 kg

DRUGS (4)
  1. AVASTIN [Suspect]
     Indication: COLON CANCER
     Route: 042
     Dates: start: 20130518, end: 20140219
  2. OXALIPLATINO [Suspect]
     Indication: COLON CANCER
     Dosage: REPORTED AS OXALIPLATINO SUN
     Route: 042
     Dates: start: 20130430, end: 20140221
  3. FLUOROURACILE [Suspect]
     Indication: COLON CANCER
     Dosage: REPORTED AS FLUOROURACILE AHCL
     Route: 042
     Dates: start: 20130430, end: 20140221
  4. PREFOLIC [Concomitant]

REACTIONS (2)
  - Chest pain [Recovered/Resolved]
  - Pericardial effusion [Recovered/Resolved]
